FAERS Safety Report 5476816-X (Version None)
Quarter: 2007Q4

REPORT INFORMATION
  Report Type: 
  Country: None (occurrence: None)
  Receive Date: 20071003
  Receipt Date: 20071003
  Transmission Date: 20080405
  Serious: No
  Sender: FDA-Public Use
  Company Number: None

PATIENT
  Sex: Female
  Weight: 158.759 kg

DRUGS (2)
  1. VYTORIN [Suspect]
  2. ZOCOR [Suspect]

REACTIONS (1)
  - MYALGIA [None]
